FAERS Safety Report 23548047 (Version 2)
Quarter: 2024Q1

REPORT INFORMATION
  Report Type: Spontaneous
  Country: PT (occurrence: PT)
  Receive Date: 20240221
  Receipt Date: 20240316
  Transmission Date: 20240409
  Serious: Yes (Other)
  Sender: FDA-Public Use
  Company Number: None

PATIENT
  Age: 66 Year
  Sex: Female

DRUGS (13)
  1. DICLOFENAC [Suspect]
     Active Substance: DICLOFENAC
     Indication: Sciatica
     Dosage: UNKNOWN, PILL
     Route: 048
     Dates: start: 20131112, end: 20131205
  2. TROMALYT [Concomitant]
     Active Substance: ASPIRIN
     Indication: Product used for unknown indication
     Dosage: 1X DAY, MODIFIED RELEASE CAPSULE
     Route: 048
  3. DOMPERIDONE [Concomitant]
     Active Substance: DOMPERIDONE
     Indication: Product used for unknown indication
     Dosage: 3X DAY, DOMPERIDONA
     Route: 048
  4. PAROXETINE [Concomitant]
     Active Substance: PAROXETINE
     Indication: Product used for unknown indication
     Dosage: PAROXETINA
     Route: 048
  5. GLICLAZIDE [Concomitant]
     Active Substance: GLICLAZIDE
     Indication: Product used for unknown indication
     Route: 048
  6. FLUPIRTINE MALEATE [Suspect]
     Active Substance: FLUPIRTINE MALEATE
     Indication: Sciatica
     Dosage: UNKNOWN
     Route: 048
     Dates: start: 20131106, end: 20131205
  7. METFORMIN HYDROCHLORIDE\VILDAGLIPTIN [Concomitant]
     Active Substance: METFORMIN HYDROCHLORIDE\VILDAGLIPTIN
     Indication: Product used for unknown indication
     Dosage: 2X DAY
     Route: 048
  8. METFORMIN HYDROCHLORIDE\VILDAGLIPTIN [Concomitant]
     Active Substance: METFORMIN HYDROCHLORIDE\VILDAGLIPTIN
     Indication: Product used for unknown indication
     Route: 065
  9. ALPRAZOLAM [Concomitant]
     Active Substance: ALPRAZOLAM
     Indication: Product used for unknown indication
     Dosage: ALPRAZOLAM 1MG ID
     Route: 048
  10. ATORVASTATIN [Concomitant]
     Active Substance: ATORVASTATIN
     Indication: Product used for unknown indication
     Route: 048
  11. RABEPRAZOLE [Concomitant]
     Active Substance: RABEPRAZOLE
     Indication: Product used for unknown indication
     Route: 048
  12. DIAZEPAM [Concomitant]
     Active Substance: DIAZEPAM
     Indication: Product used for unknown indication
     Dosage: 1X DAY
     Route: 048
  13. PERINDOPRIL [Concomitant]
     Active Substance: PERINDOPRIL
     Indication: Product used for unknown indication
     Dosage: 1X DAY
     Route: 065

REACTIONS (1)
  - Hepatitis acute [Recovered/Resolved]

NARRATIVE: CASE EVENT DATE: 20131211
